FAERS Safety Report 16225045 (Version 1)
Quarter: 2019Q2

REPORT INFORMATION
  Report Type: Report from Study
  Country: ES (occurrence: ES)
  Receive Date: 20190422
  Receipt Date: 20190422
  Transmission Date: 20190711
  Serious: Yes (Other)
  Sender: FDA-Public Use
  Company Number: ES-NAPPMUNDI-GBR-2019-0065927

PATIENT
  Age: 54 Year
  Sex: Male

DRUGS (22)
  1. CISPLATINE [Concomitant]
     Active Substance: CISPLATIN
     Indication: LUNG ADENOCARCINOMA STAGE IV
     Dosage: UNKNOWN
     Route: 016
  2. PEMETREXED. [Concomitant]
     Active Substance: PEMETREXED
     Indication: LUNG ADENOCARCINOMA STAGE IV
  3. KETAMINE [Suspect]
     Active Substance: KETAMINE
     Indication: CANCER PAIN
     Dosage: UNK
     Route: 065
  4. PAROXETINE. [Concomitant]
     Active Substance: PAROXETINE
     Indication: PRODUCT USED FOR UNKNOWN INDICATION
     Dosage: 20 MG/NIGHT
     Route: 065
  5. FENTANYL. [Suspect]
     Active Substance: FENTANYL
     Indication: BREAKTHROUGH PAIN
     Dosage: 75 UNK, EVERY 3 DAYS 1 (ONE PATCH AT EVERY THREE DAYS)
     Route: 065
  6. DEXAMETHASONE. [Concomitant]
     Active Substance: DEXAMETHASONE
     Indication: PRODUCT USED FOR UNKNOWN INDICATION
     Dosage: UNKNOWN
     Route: 065
  7. ZOLEDRONATE [Suspect]
     Active Substance: ZOLEDRONIC ACID
     Indication: CANCER PAIN
     Dosage: 1 DF, MONTHLY ( ONCE AT FOUR WEEKS)
     Route: 065
  8. OXYCODONE HYDROCHLORIDE. [Suspect]
     Active Substance: OXYCODONE HYDROCHLORIDE
     Indication: CANCER PAIN
     Dosage: 10 MG, Q8H (EVERY 8 HOURS)
     Route: 065
  9. FENTANYL. [Suspect]
     Active Substance: FENTANYL
     Indication: BREAKTHROUGH PAIN
     Dosage: UNKNOWN (BARELY NECESSARY)
     Route: 045
  10. FENTANYL. [Suspect]
     Active Substance: FENTANYL
     Dosage: 100 UNK, PRN
     Route: 045
  11. BACLOFEN. [Suspect]
     Active Substance: BACLOFEN
     Indication: CANCER PAIN
     Dosage: 10 MG, Q12H (EVERY 12 HOURS)
     Route: 065
  12. MEGESTROL ACETATE. [Concomitant]
     Active Substance: MEGESTROL ACETATE
     Indication: PRODUCT USED FOR UNKNOWN INDICATION
     Dosage: 160 MG, Q8H
     Route: 065
  13. FENTANYL. [Suspect]
     Active Substance: FENTANYL
     Dosage: 800 UG
     Route: 045
  14. OMEPRAZOLE. [Suspect]
     Active Substance: OMEPRAZOLE
     Indication: CANCER PAIN
     Dosage: 20 / 24H
     Route: 065
  15. FENTANYL. [Suspect]
     Active Substance: FENTANYL
     Dosage: 400 UG (REQUIRING 2 DOSES DAILY )
     Route: 045
  16. FENTANYL. [Suspect]
     Active Substance: FENTANYL
     Dosage: 100 MCG, EVERY 3 DAYS
     Route: 065
  17. PREGABALIN. [Suspect]
     Active Substance: PREGABALIN
     Indication: CANCER PAIN
     Dosage: 1 DF, Q12H (150 UNK, AT EVERY 12 HOURS)
     Route: 065
  18. NAPROXEN. [Suspect]
     Active Substance: NAPROXEN
     Indication: CANCER PAIN
     Dosage: 1 DF, Q12H (EVERY 12 HOURS)
     Route: 065
  19. PEMETREXED. [Concomitant]
     Active Substance: PEMETREXED
     Indication: METASTASES TO BONE
     Dosage: UNK
     Route: 065
  20. FENTANYL. [Suspect]
     Active Substance: FENTANYL
     Dosage: 2-3 DOSES EVERY 24 HOURS
     Route: 045
  21. DULOXETINE. [Suspect]
     Active Substance: DULOXETINE
     Indication: CANCER PAIN
     Dosage: 60 MG / 24 H (DAILY)
     Route: 065
  22. CISPLATINE [Concomitant]
     Active Substance: CISPLATIN
     Indication: METASTASES TO BONE

REACTIONS (16)
  - Depression [Recovering/Resolving]
  - Pulmonary embolism [Unknown]
  - Urinary retention [Unknown]
  - Fatigue [Unknown]
  - Sleep apnoea syndrome [Unknown]
  - Delirium [Unknown]
  - Cognitive disorder [Unknown]
  - Dyspnoea [Unknown]
  - Adverse event [Unknown]
  - Insomnia [Unknown]
  - Constipation [Unknown]
  - Somnolence [Unknown]
  - Vomiting [Unknown]
  - Anxiety [Unknown]
  - Decreased appetite [Recovering/Resolving]
  - Dysphagia [Unknown]
